FAERS Safety Report 16383296 (Version 1)
Quarter: 2019Q2

REPORT INFORMATION
  Report Type: Spontaneous
  Country: US (occurrence: US)
  Receive Date: 20190603
  Receipt Date: 20190603
  Transmission Date: 20190711
  Serious: No
  Sender: FDA-Public Use
  Company Number: US-PFIZER INC-2019230051

PATIENT
  Age: 66 Year
  Sex: Male
  Weight: 98.43 kg

DRUGS (1)
  1. PRISTIQ EXTENDED-RELEASE [Suspect]
     Active Substance: DESVENLAFAXINE SUCCINATE
     Indication: DEPRESSION
     Dosage: 100 MG, ONCE A DAY (100MG ONCE A DAY BY MOUTH)
     Route: 048

REACTIONS (2)
  - Nasopharyngitis [Unknown]
  - Dysphonia [Unknown]
